FAERS Safety Report 5943289-X (Version None)
Quarter: 2008Q4

REPORT INFORMATION
  Report Type: 
  Country: None (occurrence: None)
  Receive Date: 20081106
  Receipt Date: 20081029
  Transmission Date: 20090506
  Serious: Yes (Other)
  Sender: FDA-Public Use
  Company Number: PHHY2008DE19580

PATIENT
  Sex: Male

DRUGS (11)
  1. RASILEZ [Suspect]
     Indication: HYPERTENSION
     Dosage: 150 MG, QD
     Dates: start: 20080701, end: 20080801
  2. CORINFAR - SLOW RELEASE [Suspect]
     Indication: HYPERTENSION
     Dosage: 20 MG, TID
     Dates: end: 20080701
  3. CORINFAR - SLOW RELEASE [Suspect]
     Dosage: 20 MG, QID
     Dates: start: 20080701
  4. CORINFAR - SLOW RELEASE [Suspect]
     Dosage: 20 MG, TID
  5. BLOPRESS [Concomitant]
     Indication: HYPERTENSION
  6. RAMIPRIL [Concomitant]
     Indication: HYPERTENSION
     Dosage: 10 MG/DAY
  7. METOPROLOL SUCCINATE [Concomitant]
     Indication: HYPERTENSION
  8. TORSEMIDE [Concomitant]
     Indication: HYPERTENSION
     Dosage: 100 MG/DAY
  9. INSULIN [Concomitant]
     Indication: DIABETES MELLITUS
     Dosage: 12 IU, BID
  10. INSULIN [Concomitant]
     Dosage: 18 IU, BID
  11. BETA BLOCKING AGENTS [Concomitant]

REACTIONS (4)
  - BLOOD PRESSURE INADEQUATELY CONTROLLED [None]
  - DIABETES MELLITUS [None]
  - OEDEMA PERIPHERAL [None]
  - PAIN [None]
